FAERS Safety Report 7193956-8 (Version None)
Quarter: 2010Q4

REPORT INFORMATION
  Report Type: 
  Country: None (occurrence: None)
  Receive Date: 20101223
  Receipt Date: 20100913
  Transmission Date: 20110411
  Serious: No
  Sender: FDA-Public Use
  Company Number: US-AMGEN-KDL437913

PATIENT

DRUGS (6)
  1. ENBREL [Suspect]
     Indication: PRODUCT USED FOR UNKNOWN INDICATION
     Dosage: 50 MG, QWK
     Route: 058
  2. FOLIC ACID [Concomitant]
     Dosage: 1 MG, UNK
  3. ERGOCALCIFEROL [Concomitant]
     Dosage: 1000 IU, UNK
  4. VITAMIN B COMPLEX [Concomitant]
  5. UNSPECIFIED VITAMINS [Concomitant]
     Dosage: 97 MG, UNK
  6. MAGNESIUM [Concomitant]
     Dosage: 300 MG, UNK

REACTIONS (3)
  - INJECTION SITE PAIN [None]
  - INJECTION SITE PRURITUS [None]
  - INJECTION SITE REACTION [None]
